FAERS Safety Report 6479506-X (Version None)
Quarter: 2009Q4

REPORT INFORMATION
  Report Type: 
  Country: None (occurrence: None)
  Receive Date: 20091207
  Receipt Date: 20091207
  Transmission Date: 20100525
  Serious: Yes (Death)
  Sender: FDA-Public Use
  Company Number: None

PATIENT
  Age: 69 Year
  Sex: Male
  Weight: 83.9154 kg

DRUGS (1)
  1. PLAVIX [Suspect]
     Dosage: 75MG DAILY PO
     Route: 048
     Dates: start: 20080414, end: 20091012

REACTIONS (6)
  - BRAIN MIDLINE SHIFT [None]
  - CENTRAL NERVOUS SYSTEM FUNCTION TEST ABNORMAL [None]
  - CEREBRAL HAEMORRHAGE [None]
  - GENERAL PHYSICAL HEALTH DETERIORATION [None]
  - LOSS OF CONSCIOUSNESS [None]
  - OFF LABEL USE [None]
